FAERS Safety Report 17867639 (Version 1)
Quarter: 2020Q2

REPORT INFORMATION
  Report Type: Spontaneous
  Country: AU (occurrence: AU)
  Receive Date: 20200605
  Receipt Date: 20200605
  Transmission Date: 20200714
  Serious: Yes (Other)
  Sender: FDA-Public Use
  Company Number: AU-NOVOPROD-731070

PATIENT
  Sex: Male

DRUGS (3)
  1. NOVORAPID [Suspect]
     Active Substance: INSULIN ASPART
     Indication: TYPE 1 DIABETES MELLITUS
     Dosage: 2 UNITS:15 G OF CARBS
     Route: 065
  2. LANTUS [Concomitant]
     Active Substance: INSULIN GLARGINE
     Indication: TYPE 1 DIABETES MELLITUS
     Dosage: 36 LANTUS
     Route: 065
  3. NOVORAPID [Suspect]
     Active Substance: INSULIN ASPART
     Dosage: DOSING ON A PRN BASIS
     Route: 065

REACTIONS (4)
  - Glycosylated haemoglobin increased [Unknown]
  - Blood glucose abnormal [Unknown]
  - Product dose omission [Unknown]
  - Diabetic ketoacidosis [Unknown]

NARRATIVE: CASE EVENT DATE: 2015
